FAERS Safety Report 5367052-6 (Version None)
Quarter: 2007Q2

REPORT INFORMATION
  Report Type: 
  Country: None (occurrence: None)
  Receive Date: 20070622
  Receipt Date: 20070618
  Transmission Date: 20071010
  Serious: Yes (Hospitalization)
  Sender: FDA-Public Use
  Company Number: B0469391A

PATIENT
  Age: 60 Year
  Sex: Male
  Weight: 65 kg

DRUGS (1)
  1. ARIXTRA [Suspect]
     Dosage: 7.5MG SINGLE DOSE
     Route: 058

REACTIONS (3)
  - DEEP VEIN THROMBOSIS [None]
  - DRUG INEFFECTIVE [None]
  - INTENTIONAL DRUG MISUSE [None]
